FAERS Safety Report 18799536 (Version 1)
Quarter: 2021Q1

REPORT INFORMATION
  Report Type: Spontaneous
  Country: US (occurrence: US)
  Receive Date: 20210128
  Receipt Date: 20210128
  Transmission Date: 20210419
  Serious: No
  Sender: FDA-Public Use
  Company Number: None

PATIENT
  Age: 28 Year
  Sex: Female
  Weight: 76.5 kg

DRUGS (6)
  1. DEXTROAMPHET SACCHARAT, AMPHET ASPARTATE, DEXTROAMPHET SULFATE AND AMPHET SULFAT [Suspect]
     Active Substance: AMPHETAMINE ASPARTATE\AMPHETAMINE SULFATE\DEXTROAMPHETAMINE SACCHARATE\DEXTROAMPHETAMINE SULFATE
     Indication: ATTENTION DEFICIT HYPERACTIVITY DISORDER
     Dosage: ?          QUANTITY:1 CAPSULE(S);?
     Route: 048
     Dates: start: 20210115, end: 20210123
  2. IWI BRAND OMEGA?3 CAPSULES [Concomitant]
  3. SOLGAR BVITAMIN B 12 [Concomitant]
  4. HI STEVIE CBD TINCTURE [Concomitant]
  5. DEXTROAMP?AMPHETAMIN 15 MG TAB [Concomitant]
  6. LOVE WELLNESS SLEEPING PILLS [Concomitant]

REACTIONS (7)
  - Product substitution issue [None]
  - Major depression [None]
  - Lethargy [None]
  - Lymphadenopathy [None]
  - Crying [None]
  - Irritability [None]
  - Headache [None]

NARRATIVE: CASE EVENT DATE: 20210123
